FAERS Safety Report 25553860 (Version 1)
Quarter: 2025Q3

REPORT INFORMATION
  Report Type: Spontaneous
  Country: GB (occurrence: GB)
  Receive Date: 20250715
  Receipt Date: 20250715
  Transmission Date: 20251020
  Serious: Yes (Hospitalization)
  Sender: AUROBINDO
  Company Number: GB-MHRA-MIDB-17633d2c-2be0-479a-8525-1c6d6028ff03

PATIENT
  Age: 21 Year

DRUGS (1)
  1. MELATONIN [Suspect]
     Active Substance: MELATONIN
     Indication: Product used for unknown indication
     Route: 065

REACTIONS (2)
  - Headache [Recovered/Resolved]
  - Abnormal behaviour [Unknown]
